FAERS Safety Report 18650337 (Version 1)
Quarter: 2020Q4

REPORT INFORMATION
  Report Type: Spontaneous
  Country: US (occurrence: US)
  Receive Date: 20201222
  Receipt Date: 20201222
  Transmission Date: 20210114
  Serious: Yes (Hospitalization)
  Sender: FDA-Public Use
  Company Number: US-PARI RESPIRATORY EQUIPMENT, INC.-2020PAR00059

PATIENT
  Sex: Female
  Weight: 33.52 kg

DRUGS (6)
  1. KITABIS PAK [Suspect]
     Active Substance: TOBRAMYCIN
     Indication: IDIOPATHIC GENERALISED EPILEPSY
  2. KITABIS PAK [Suspect]
     Active Substance: TOBRAMYCIN
     Indication: EPILEPSY
  3. FERROUS SULFATE. [Concomitant]
     Active Substance: FERROUS SULFATE
  4. KITABIS PAK [Suspect]
     Active Substance: TOBRAMYCIN
     Indication: CYSTIC FIBROSIS
     Dosage: 300 MG VIA NEBULIZER, 2X/DAY FOR 14 DAYS ON AND 14 DAYS OFF
  5. LOW-OGESTEREL [Concomitant]
  6. EPIDIOLEX [Concomitant]
     Active Substance: CANNABIDIOL

REACTIONS (2)
  - Off label use [Unknown]
  - Hospitalisation [Unknown]
